FAERS Safety Report 4664120-9 (Version None)
Quarter: 2005Q2

REPORT INFORMATION
  Report Type: 
  Country: None (occurrence: None)
  Receive Date: 20050510
  Receipt Date: 20050428
  Transmission Date: 20051028
  Serious: Yes (Hospitalization)
  Sender: FDA-Public Use
  Company Number: 200510289BFR

PATIENT
  Age: 67 Year
  Sex: Male

DRUGS (7)
  1. KOGENATE [Suspect]
     Indication: SURGERY
     Dosage: 3 KIU , TOTAL DAILY, INTRAVENOUS
     Route: 042
     Dates: start: 20041126, end: 20041213
  2. KOGENATE [Suspect]
  3. KOGENATE [Suspect]
  4. KOGENATE [Suspect]
  5. KOGENATE [Suspect]
  6. HELIXATE [Suspect]
     Indication: SURGERY
     Dosage: 2 KIU, TOTAL DAILY, INTRAVENOUS
     Route: 042
     Dates: start: 20041122
  7. HELIXATE [Suspect]
     Indication: SURGERY
     Dosage: 3 KIU, TOTAL DAILY , INTRAVENOUS
     Route: 042
     Dates: start: 20041124, end: 20041126

REACTIONS (2)
  - DRUG INEFFECTIVE [None]
  - FACTOR VIII INHIBITION [None]
